FAERS Safety Report 6500539-9 (Version None)
Quarter: 2009Q4

REPORT INFORMATION
  Report Type: 
  Country: None (occurrence: None)
  Receive Date: 20091216
  Receipt Date: 20091209
  Transmission Date: 20100525
  Serious: Yes (Other)
  Sender: FDA-Public Use
  Company Number: FR-BRISTOL-MYERS SQUIBB COMPANY-14847784

PATIENT
  Age: 85 Year
  Sex: Male

DRUGS (5)
  1. ELISOR [Suspect]
     Route: 048
  2. ZESTORETIC [Suspect]
     Route: 048
     Dates: end: 20091101
  3. ZYLORIC [Suspect]
     Route: 048
  4. FELDENE [Suspect]
     Route: 048
  5. LASILIX [Suspect]
     Route: 048

REACTIONS (1)
  - INTERSTITIAL LUNG DISEASE [None]
